FAERS Safety Report 16128920 (Version 3)
Quarter: 2019Q2

REPORT INFORMATION
  Report Type: Report from Study
  Country: US (occurrence: US)
  Receive Date: 20190328
  Receipt Date: 20190409
  Transmission Date: 20190711
  Serious: Yes (Other)
  Sender: FDA-Public Use
  Company Number: US-ROCHE-2291723

PATIENT
  Sex: Male
  Weight: 79.2 kg

DRUGS (11)
  1. PIRFENIDONE. [Suspect]
     Active Substance: PIRFENIDONE
     Indication: RESPIRATORY DISORDER PROPHYLAXIS
     Route: 048
     Dates: start: 20180404, end: 20190402
  2. LISINOPRIL. [Concomitant]
     Active Substance: LISINOPRIL
     Route: 065
     Dates: start: 20181219
  3. MYCOPHENOLATE [Concomitant]
     Active Substance: MYCOPHENOLIC ACID
     Route: 065
     Dates: start: 20181219
  4. NEBULIZER AND COMPRESSOR (UNK INGREDIENTS) [Concomitant]
     Route: 065
     Dates: start: 20181219
  5. AMOXICILLIN. [Concomitant]
     Active Substance: AMOXICILLIN
     Route: 065
     Dates: start: 20181219
  6. RIVAROXABAN [Concomitant]
     Active Substance: RIVAROXABAN
     Route: 065
     Dates: start: 20181219
  7. BUDESONIDE. [Concomitant]
     Active Substance: BUDESONIDE
     Route: 055
     Dates: start: 20181219
  8. MONTELUKAST [Concomitant]
     Active Substance: MONTELUKAST SODIUM
     Route: 065
     Dates: start: 20181219
  9. ANDROGEL [Concomitant]
     Active Substance: TESTOSTERONE
     Route: 065
     Dates: start: 20181219
  10. PANTOPRAZOL [Concomitant]
     Active Substance: PANTOPRAZOLE SODIUM
     Dosage: DELAYED RELEASE TABLET
     Route: 065
     Dates: start: 20181219
  11. PREDNISON [Concomitant]
     Active Substance: PREDNISONE
     Route: 065
     Dates: start: 20181219

REACTIONS (2)
  - Embolism [Recovered/Resolved]
  - Deep vein thrombosis [Recovered/Resolved]
